FAERS Safety Report 5854991-2 (Version None)
Quarter: 2008Q3

REPORT INFORMATION
  Report Type: 
  Country: None (occurrence: None)
  Receive Date: 20080822
  Receipt Date: 20080501
  Transmission Date: 20090109
  Serious: No
  Sender: FDA-Public Use
  Company Number: US-ABBOTT-08P-163-0450082-00

PATIENT
  Sex: Female
  Weight: 44.492 kg

DRUGS (5)
  1. SYNTHROID [Suspect]
     Indication: HYPOTHYROIDISM
     Route: 048
     Dates: start: 20060906, end: 20070624
  2. SYNTHROID [Suspect]
     Route: 048
     Dates: start: 20070624, end: 20070720
  3. SYNTHROID [Suspect]
     Dosage: ALTERNATING EVERY OTHER DAY WITH 50MCG
     Route: 048
     Dates: start: 20070720, end: 20080329
  4. SYNTHROID [Suspect]
     Route: 048
     Dates: start: 20080406, end: 20080407
  5. SYNTHROID [Suspect]
     Dosage: 1/2 TABLET OF THE 25 MCG TABLET
     Route: 048
     Dates: start: 20080408, end: 20080413

REACTIONS (10)
  - ALOPECIA [None]
  - ASTHENIA [None]
  - CHEST PAIN [None]
  - DIZZINESS [None]
  - FATIGUE [None]
  - HEADACHE [None]
  - INSOMNIA [None]
  - MYALGIA [None]
  - OEDEMA PERIPHERAL [None]
  - PALPITATIONS [None]
